FAERS Safety Report 10033890 (Version 1)
Quarter: 2014Q1

REPORT INFORMATION
  Report Type: Spontaneous
  Country: US (occurrence: US)
  Receive Date: 20140325
  Receipt Date: 20140325
  Transmission Date: 20141002
  Serious: No
  Sender: FDA-Public Use
  Company Number: US-009507513-1403USA011203

PATIENT
  Age: 62 Year
  Sex: Female

DRUGS (5)
  1. JANUVIA [Suspect]
     Indication: DIABETES MELLITUS
     Dosage: 100 MG, QD
     Route: 048
     Dates: start: 20140317
  2. ZOCOR [Concomitant]
     Indication: BLOOD CHOLESTEROL ABNORMAL
     Route: 048
  3. VITAMIN E [Concomitant]
  4. VITAMIN D (UNSPECIFIED) [Concomitant]
  5. MAGNESIUM (UNSPECIFIED) [Concomitant]

REACTIONS (1)
  - Hot flush [Unknown]
